FAERS Safety Report 11864132 (Version 3)
Quarter: 2015Q4

REPORT INFORMATION
  Report Type: Spontaneous
  Country: AT (occurrence: AT)
  Receive Date: 20151223
  Receipt Date: 20151231
  Transmission Date: 20160305
  Serious: Yes (Death, Other)
  Sender: FDA-Public Use
  Company Number: AT-TEVA-619722ACC

PATIENT
  Age: 71 Year
  Sex: Male

DRUGS (3)
  1. BENDAMUSTINE HYDROCHLORIDE [Suspect]
     Active Substance: BENDAMUSTINE HYDROCHLORIDE
     Indication: CHRONIC LYMPHOCYTIC LEUKAEMIA
     Route: 042
  2. VIDAZA [Suspect]
     Active Substance: AZACITIDINE
     Indication: ACUTE MYELOID LEUKAEMIA
     Route: 058
  3. RITUXIMAB [Suspect]
     Active Substance: RITUXIMAB
     Indication: CHRONIC LYMPHOCYTIC LEUKAEMIA
     Route: 065

REACTIONS (9)
  - Neutropenic infection [Unknown]
  - Acute myeloid leukaemia [Unknown]
  - Acute myeloid leukaemia recurrent [Unknown]
  - Cardiac valve disease [Unknown]
  - Thrombocytopenia [Unknown]
  - Chronic lymphocytic leukaemia recurrent [Unknown]
  - Anaemia [Recovered/Resolved]
  - Cardiac failure [Fatal]
  - Neutropenia [Unknown]
